FAERS Safety Report 10223080 (Version 2)
Quarter: 2014Q2

REPORT INFORMATION
  Report Type: Spontaneous
  Country: GB (occurrence: GB)
  Receive Date: 20140607
  Receipt Date: 20140607
  Transmission Date: 20141212
  Serious: Yes (Hospitalization, Other)
  Sender: FDA-Public Use
  Company Number: PHFR2014GB002108

PATIENT
  Age: 64 Year
  Sex: Female

DRUGS (5)
  1. CLOZARIL [Suspect]
     Indication: SCHIZOPHRENIA
     Dosage: 350 MG, DAILY
     Route: 048
     Dates: start: 20010125, end: 20140305
  2. THYROXINE [Concomitant]
     Indication: HYPERTHYROIDISM
     Dosage: 125 UG, QD
     Route: 048
  3. TOLTERODINE [Concomitant]
     Indication: INCONTINENCE
     Dosage: 4 MG, QD
     Route: 048
  4. TERAZOSIN [Concomitant]
     Indication: HYPERTENSION
     Dosage: 2 MG, QD
     Route: 048
     Dates: end: 20140227
  5. MANICOL [Concomitant]
     Indication: CONSTIPATION
     Dosage: UKN
     Route: 048
     Dates: end: 20140227

REACTIONS (5)
  - Cardiomyopathy [Not Recovered/Not Resolved]
  - Dyspnoea [Recovered/Resolved with Sequelae]
  - Chest pain [Recovered/Resolved with Sequelae]
  - Bundle branch block right [Unknown]
  - Myocardial infarction [Unknown]
